FAERS Safety Report 10231109 (Version 1)
Quarter: 2014Q2

REPORT INFORMATION
  Report Type: Spontaneous
  Country: US (occurrence: US)
  Receive Date: 20140611
  Receipt Date: 20140611
  Transmission Date: 20141212
  Serious: Yes (Other)
  Sender: FDA-Public Use
  Company Number: US-LUNDBECK-DKLU1100857

PATIENT
  Sex: Female

DRUGS (4)
  1. SABRIL     (TABLET) [Suspect]
     Indication: COMPLEX PARTIAL SEIZURES
     Dates: start: 20140106
  2. SABRIL     (TABLET) [Suspect]
     Dates: start: 20140106
  3. SABRIL     (TABLET) [Suspect]
  4. FELBATOL [Concomitant]
     Indication: PRODUCT USED FOR UNKNOWN INDICATION

REACTIONS (2)
  - Convulsion [Unknown]
  - Drug ineffective [Unknown]
